FAERS Safety Report 14249774 (Version 1)
Quarter: 2017Q4

REPORT INFORMATION
  Report Type: Spontaneous
  Country: AU (occurrence: AU)
  Receive Date: 20171205
  Receipt Date: 20171205
  Transmission Date: 20180321
  Serious: Yes (Other)
  Sender: FDA-Public Use
  Company Number: AU-SUN PHARMACEUTICAL INDUSTRIES LTD-2017R1-156032

PATIENT
  Age: 11 Year
  Sex: Female

DRUGS (1)
  1. VALPROIC ACID. [Suspect]
     Active Substance: VALPROIC ACID
     Indication: TEMPORAL LOBE EPILEPSY
     Dosage: 38 MG/KG, DAILY
     Route: 065

REACTIONS (3)
  - Cognitive disorder [Recovered/Resolved]
  - Toxic encephalopathy [Recovered/Resolved]
  - Cerebral atrophy [Recovered/Resolved]
